FAERS Safety Report 5706994-6 (Version None)
Quarter: 2008Q2

REPORT INFORMATION
  Report Type: 
  Country: None (occurrence: None)
  Receive Date: 20080416
  Receipt Date: 20080408
  Transmission Date: 20081010
  Serious: Yes (Other)
  Sender: FDA-Public Use
  Company Number: US-BAYER-200812359NA

PATIENT
  Age: 81 Year
  Sex: Female

DRUGS (23)
  1. ULTRAVIST 300 [Suspect]
     Indication: COMPUTERISED TOMOGRAM
     Dosage: TOTAL DAILY DOSE: 100 ML  UNIT DOSE: 100 ML
     Route: 042
     Dates: start: 20080117, end: 20080117
  2. PROTONIX [Concomitant]
  3. BECONAISE AQ [Concomitant]
  4. COZAAR [Concomitant]
     Dosage: UNIT DOSE: 100 MG
  5. CLARITIN [Concomitant]
  6. LASIX [Concomitant]
     Dosage: AS USED: 40 MG  UNIT DOSE: 40 MG
  7. POTASSIUM CHLORIDE [Concomitant]
  8. HUMIBID [Concomitant]
  9. MUCINEX [Concomitant]
  10. DARVOCET-N [Concomitant]
     Indication: PAIN
  11. ASPIRIN [Concomitant]
     Dosage: UNIT DOSE: 81 MG
  12. PREMARIN [Concomitant]
     Dosage: AS USED: 0.45 MG  UNIT DOSE: 0.45 MG
  13. XANAX [Concomitant]
  14. VALIUM [Concomitant]
  15. PSYLLIUM [Concomitant]
  16. FIBROCON [Concomitant]
  17. SENNA [Concomitant]
  18. XOPENEX [Concomitant]
  19. NITROSTAT [Concomitant]
  20. READI-CAT [Concomitant]
     Route: 048
     Dates: start: 20080117, end: 20080117
  21. BENADRYL [Concomitant]
     Dosage: TOTAL DAILY DOSE: 50 MG
     Route: 048
     Dates: start: 20080114, end: 20080116
  22. DEXAMETHASONE [Concomitant]
     Dosage: TOTAL DAILY DOSE: 8 MG
     Route: 048
     Dates: start: 20080114, end: 20080116
  23. RANITIDINE [Concomitant]
     Dosage: TOTAL DAILY DOSE: 300 MG
     Route: 048
     Dates: start: 20080114, end: 20080116

REACTIONS (5)
  - DIZZINESS [None]
  - DYSPHAGIA [None]
  - EYE SWELLING [None]
  - OEDEMA PERIPHERAL [None]
  - PHARYNGOLARYNGEAL DISCOMFORT [None]
